FAERS Safety Report 6450385-X (Version None)
Quarter: 2009Q4

REPORT INFORMATION
  Report Type: 
  Country: None (occurrence: None)
  Receive Date: 20091116
  Receipt Date: 20090818
  Transmission Date: 20100525
  Serious: No
  Sender: FDA-Public Use
  Company Number: WAES 0908USA02985

PATIENT
  Sex: Female
  Weight: 70.3075 kg

DRUGS (2)
  1. ISENTRESS [Suspect]
     Indication: HIV INFECTION
     Dosage: 400 MG/BID/PO
     Route: 048
     Dates: start: 20081117, end: 20090715
  2. TRUVADA [Concomitant]

REACTIONS (2)
  - DRUG DISPENSING ERROR [None]
  - VIRAL LOAD INCREASED [None]
